FAERS Safety Report 10451009 (Version 4)
Quarter: 2014Q4

REPORT INFORMATION
  Report Type: Spontaneous
  Country: US (occurrence: US)
  Receive Date: 20140912
  Receipt Date: 20141106
  Transmission Date: 20150528
  Serious: Yes (Death, Life-Threatening, Hospitalization, Other)
  Sender: FDA-Public Use
  Company Number: US-ROXANE LABORATORIES, INC.-2014-RO-01390RO

PATIENT
  Age: 48 Year
  Sex: Male
  Weight: 93 kg

DRUGS (15)
  1. BASILIXIMAB [Suspect]
     Active Substance: BASILIXIMAB
     Indication: RENAL TRANSPLANT
     Route: 042
     Dates: start: 20130709, end: 20130709
  2. PANTOPRAZOLE [Concomitant]
     Active Substance: PANTOPRAZOLE SODIUM
     Route: 065
     Dates: start: 20130710
  3. SOLU-MEDROL [Suspect]
     Active Substance: METHYLPREDNISOLONE SODIUM SUCCINATE
     Indication: PRODUCT USED FOR UNKNOWN INDICATION
     Route: 065
  4. HUMULIN R [Concomitant]
     Active Substance: INSULIN HUMAN
     Route: 065
     Dates: start: 20130710
  5. HEPARIN [Suspect]
     Active Substance: HEPARIN SODIUM
     Indication: HEART VALVE REPLACEMENT
     Route: 042
     Dates: start: 20130710, end: 20130822
  6. BUMEX [Concomitant]
     Active Substance: BUMETANIDE
     Route: 065
     Dates: start: 20130709
  7. CORTICOSTEROID [Concomitant]
     Active Substance: CORTICOSTEROID NOS
     Route: 065
     Dates: start: 20130710, end: 20130822
  8. ASKP1240 [Suspect]
     Active Substance: INVESTIGATIONAL PRODUCT
     Indication: RENAL TRANSPLANT
     Route: 042
     Dates: start: 20130709, end: 20130709
  9. PREDNISONE. [Suspect]
     Active Substance: PREDNISONE
     Indication: PRODUCT USED FOR UNKNOWN INDICATION
     Dosage: 20 MG
     Route: 048
     Dates: start: 20130714
  10. TACROLIMUS. [Suspect]
     Active Substance: TACROLIMUS
     Indication: RENAL TRANSPLANT
     Dosage: 1 MG
     Route: 048
     Dates: start: 20130709, end: 20130712
  11. MYFORTIC [Suspect]
     Active Substance: MYCOPHENOLATE SODIUM
     Indication: RENAL TRANSPLANT
     Dosage: 2160 MG
     Route: 048
     Dates: start: 20130717
  12. MORPHINE [Suspect]
     Active Substance: MORPHINE
     Indication: PAIN
     Route: 042
     Dates: start: 20130709
  13. DEMEROL [Concomitant]
     Active Substance: MEPERIDINE HYDROCHLORIDE
     Route: 065
     Dates: start: 20130709
  14. THYMOGLOBULIN [Suspect]
     Active Substance: LAPINE T-LYMPHOCYTE IMMUNE GLOBULIN
     Indication: TRANSPLANT REJECTION
     Route: 042
     Dates: start: 20130712, end: 20130714
  15. HYDROCODONE [Suspect]
     Active Substance: HYDROCODONE
     Indication: PRODUCT USED FOR UNKNOWN INDICATION
     Route: 065

REACTIONS (14)
  - Intestinal obstruction [Recovered/Resolved with Sequelae]
  - Appendicitis [Recovered/Resolved with Sequelae]
  - Kidney transplant rejection [Recovered/Resolved with Sequelae]
  - Intra-abdominal haemorrhage [Not Recovered/Not Resolved]
  - Pancreatitis [Recovered/Resolved]
  - Intestinal ischaemia [Not Recovered/Not Resolved]
  - Sepsis [Fatal]
  - Blood bilirubin increased [Not Recovered/Not Resolved]
  - Acute respiratory failure [Unknown]
  - Septic shock [Recovered/Resolved with Sequelae]
  - Cholelithiasis [Recovered/Resolved]
  - Peritonitis [Not Recovered/Not Resolved]
  - Liver function test abnormal [Not Recovered/Not Resolved]
  - Acute kidney injury [Not Recovered/Not Resolved]

NARRATIVE: CASE EVENT DATE: 20130716
